FAERS Safety Report 17471697 (Version 9)
Quarter: 2023Q2

REPORT INFORMATION
  Report Type: Report from Study
  Country: IL (occurrence: IL)
  Receive Date: 20200228
  Receipt Date: 20230606
  Transmission Date: 20230721
  Serious: Yes (Death, Hospitalization, Other)
  Sender: FDA-Public Use
  Company Number: IL-ABBVIE-19K-082-3001148-00

PATIENT
  Age: 83 Year
  Sex: Female
  Weight: 50 kg

DRUGS (16)
  1. VENCLEXTA [Suspect]
     Active Substance: VENETOCLAX
     Indication: Chronic lymphocytic leukaemia
     Route: 048
     Dates: start: 20190728, end: 20190803
  2. VENCLEXTA [Suspect]
     Active Substance: VENETOCLAX
     Indication: Chronic lymphocytic leukaemia
     Route: 048
     Dates: start: 20190804, end: 20190810
  3. VENCLEXTA [Suspect]
     Active Substance: VENETOCLAX
     Indication: Chronic lymphocytic leukaemia
     Route: 048
     Dates: start: 20190811, end: 20190817
  4. VENCLEXTA [Suspect]
     Active Substance: VENETOCLAX
     Indication: Chronic lymphocytic leukaemia
     Route: 048
     Dates: start: 20190818, end: 20190824
  5. VENCLEXTA [Suspect]
     Active Substance: VENETOCLAX
     Indication: Chronic lymphocytic leukaemia
     Route: 048
     Dates: start: 20190825, end: 20190925
  6. VENCLEXTA [Suspect]
     Active Substance: VENETOCLAX
     Indication: Chronic lymphocytic leukaemia
     Dosage: MODIFICATION TO THE DAILY DOSE,	300 MILLIGRAM
     Route: 048
     Dates: start: 20190926, end: 20191005
  7. VENCLEXTA [Suspect]
     Active Substance: VENETOCLAX
     Indication: Chronic lymphocytic leukaemia
     Dosage: DURATION TEXT: INTERRUPTION, 200 MILLIGRAM
     Route: 048
     Dates: start: 20191009, end: 20191017
  8. VENCLEXTA [Suspect]
     Active Substance: VENETOCLAX
     Indication: Chronic lymphocytic leukaemia
     Dosage: DURATION TEXT: MODIFICATION TO THE DAILY DOSE, 300 MILLIGRAM
     Route: 048
     Dates: start: 20191018, end: 20200122
  9. VENCLEXTA [Suspect]
     Active Substance: VENETOCLAX
     Indication: Chronic lymphocytic leukaemia
     Dosage: DURATION TEXT: MODIFICATION TO THE DAILY DOSE
     Route: 048
     Dates: start: 20200123, end: 20200130
  10. VENCLEXTA [Suspect]
     Active Substance: VENETOCLAX
     Indication: Chronic lymphocytic leukaemia
     Dosage: DURATION TEXT: INTERRUPTION, 300 MILLIGRAM
     Route: 048
     Dates: start: 20200131, end: 20200714
  11. VENCLEXTA [Suspect]
     Active Substance: VENETOCLAX
     Indication: Chronic lymphocytic leukaemia
     Dosage: DURATION TEXT: INTERRUPTION
     Route: 048
     Dates: start: 20191006, end: 20191008
  12. MABTHERA [Suspect]
     Active Substance: RITUXIMAB
     Indication: Monoclonal antibody immunoconjugate therapy
     Dosage: CYCLE NUMBER 1
     Route: 065
     Dates: start: 20200115, end: 20200115
  13. MABTHERA [Suspect]
     Active Substance: RITUXIMAB
     Indication: Monoclonal antibody immunoconjugate therapy
     Route: 065
     Dates: start: 20200223, end: 20200223
  14. ALLOPURINOL [Suspect]
     Active Substance: ALLOPURINOL
     Indication: Prophylaxis
     Route: 065
     Dates: start: 20190724, end: 20190925
  15. FOLIC ACID [Concomitant]
     Active Substance: FOLIC ACID
     Indication: Chronic lymphocytic leukaemia
     Route: 065
  16. FUROSEMIDE [Concomitant]
     Active Substance: FUROSEMIDE
     Indication: Hyperuricaemia
     Route: 065
     Dates: start: 20180227

REACTIONS (18)
  - Inflammatory myofibroblastic tumour [Fatal]
  - Inflammatory myofibroblastic tumour [Fatal]
  - Asthenia [Fatal]
  - Dehydration [Fatal]
  - Hypoalbuminaemia [Fatal]
  - Abdominal pain [Recovered/Resolved]
  - Oral candidiasis [Recovered/Resolved]
  - Sepsis [Recovered/Resolved]
  - Inflammatory myofibroblastic tumour [Not Recovered/Not Resolved]
  - Vomiting [Recovered/Resolved]
  - Pruritus [Recovered/Resolved]
  - Asthenia [Recovered/Resolved]
  - Rash [Recovered/Resolved]
  - Rash [Recovered/Resolved]
  - Platelet count decreased [Recovered/Resolved]
  - Neutropenia [Recovered/Resolved]
  - Urinary tract infection [Recovered/Resolved]
  - Decreased appetite [Fatal]

NARRATIVE: CASE EVENT DATE: 20190808
